FAERS Safety Report 7922748-4 (Version None)
Quarter: 2011Q4

REPORT INFORMATION
  Report Type: 
  Country: None (occurrence: None)
  Receive Date: 20111117
  Receipt Date: 20110713
  Transmission Date: 20120403
  Serious: No
  Sender: FDA-Public Use
  Company Number: US-ALLERGAN-1109461US

PATIENT
  Age: 79 Year
  Sex: Male

DRUGS (5)
  1. MULTI-VITAMIN [Concomitant]
  2. AZOPT [Concomitant]
  3. TRAVATAN [Concomitant]
  4. ASPIRIN [Concomitant]
     Indication: PRODUCT USED FOR UNKNOWN INDICATION
     Dosage: 325 MG, QD
  5. COMBIGAN [Suspect]
     Indication: GLAUCOMA
     Dosage: 2 GTT, Q12H
     Dates: start: 20091022

REACTIONS (2)
  - HEPATIC CYST [None]
  - HEPATIC ENZYME INCREASED [None]
